FAERS Safety Report 25497454 (Version 1)
Quarter: 2025Q3

REPORT INFORMATION
  Report Type: Spontaneous
  Country: JP (occurrence: JP)
  Receive Date: 20250701
  Receipt Date: 20250701
  Transmission Date: 20251020
  Serious: Yes (Death)
  Sender: ROCHE
  Company Number: JP-CHUGAI-2025020556

PATIENT
  Age: 11 Year
  Sex: Female
  Weight: 18 kg

DRUGS (17)
  1. EVRYSDI [Suspect]
     Active Substance: RISDIPLAM
     Indication: Spinal muscular atrophy
     Dosage: 4.5 MILLIGRAM, QD
     Route: 048
     Dates: start: 20211223, end: 20220307
  2. EVRYSDI [Suspect]
     Active Substance: RISDIPLAM
     Dosage: 4.65 MILLIGRAM, QD
     Route: 048
     Dates: start: 20220308, end: 20220427
  3. EVRYSDI [Suspect]
     Active Substance: RISDIPLAM
     Dosage: 4.8 MILLIGRAM, QD
     Route: 048
     Dates: start: 20220428, end: 20220718
  4. EVRYSDI [Suspect]
     Active Substance: RISDIPLAM
     Dosage: 5 MILLIGRAM, QD
     Route: 048
     Dates: start: 20220719
  5. EVRYSDI [Suspect]
     Active Substance: RISDIPLAM
     Route: 050
     Dates: end: 20250616
  6. FAMOTIDINE [Concomitant]
     Active Substance: FAMOTIDINE
     Route: 050
  7. AMBROXOL HYDROCHLORIDE [Concomitant]
     Active Substance: AMBROXOL HYDROCHLORIDE
     Route: 050
  8. CARBOCYSTEINE [Concomitant]
     Active Substance: CARBOCYSTEINE
     Route: 050
  9. LEVOCARNITINE [Concomitant]
     Active Substance: LEVOCARNITINE
     Route: 050
  10. ZINC [Concomitant]
     Active Substance: ZINC
     Route: 050
     Dates: end: 20230207
  11. ZINC [Concomitant]
     Active Substance: ZINC
     Route: 050
     Dates: start: 20230531
  12. ENEVO [Concomitant]
     Route: 050
  13. AMINO ACIDS\DEXTROSE\ELECTROLYTES NOS\SOYBEAN OIL\VITAMINS [Concomitant]
     Active Substance: AMINO ACIDS\DEXTROSE\ELECTROLYTES NOS\SOYBEAN OIL\VITAMINS
     Route: 065
     Dates: start: 20221004
  14. OMEPRAZOLE SODIUM [Concomitant]
     Active Substance: OMEPRAZOLE SODIUM
     Route: 065
     Dates: start: 20230808, end: 20230810
  15. GLYCERIN [Concomitant]
     Active Substance: GLYCERIN
     Route: 050
     Dates: start: 20230807, end: 20230813
  16. RIKKUNSHITO [ATRACTYLODES SPP. RHIZOME;CITRUS X AURANTIUM PEEL;GLYCYRR [Concomitant]
     Route: 050
     Dates: start: 20230810, end: 20230821
  17. INFLUENZA VIRUS VACCINE [Concomitant]
     Active Substance: INFLUENZA VIRUS VACCINE
     Route: 065
     Dates: start: 20231106, end: 20231106

REACTIONS (1)
  - Accident [Fatal]

NARRATIVE: CASE EVENT DATE: 20250617
